FAERS Safety Report 8496539-2 (Version None)
Quarter: 2012Q3

REPORT INFORMATION
  Report Type: 
  Country: None (occurrence: None)
  Receive Date: 20120709
  Receipt Date: 20120704
  Transmission Date: 20120928
  Serious: Yes (Life-Threatening, Hospitalization)
  Sender: FDA-Public Use
  Company Number: DE-ELI_LILLY_AND_COMPANY-DE201207001771

PATIENT
  Age: 54 Year
  Sex: Female
  Weight: 90 kg

DRUGS (4)
  1. ASPIRIN [Concomitant]
     Dosage: 100 MG, UNK
     Dates: start: 20120202
  2. ASPIRIN [Concomitant]
     Indication: STENT PLACEMENT
     Dosage: 500 MG, UNK
     Dates: start: 20120201, end: 20120201
  3. EFFIENT [Suspect]
     Indication: STENT PLACEMENT
     Dosage: 60 MG, QD
     Dates: start: 20120201, end: 20120201
  4. EFFIENT [Suspect]
     Dosage: 10 MG, QD
     Route: 048
     Dates: start: 20120202

REACTIONS (1)
  - VENTRICULAR FIBRILLATION [None]
